FAERS Safety Report 7416240-3 (Version None)
Quarter: 2011Q2

REPORT INFORMATION
  Report Type: 
  Country: None (occurrence: None)
  Receive Date: 20110414
  Receipt Date: 20110407
  Transmission Date: 20111010
  Serious: Yes (Hospitalization)
  Sender: FDA-Public Use
  Company Number: FR-GILEAD-2011-0038324

PATIENT
  Sex: Male

DRUGS (4)
  1. CORTANCYL [Suspect]
     Indication: LIVER TRANSPLANT
     Route: 048
     Dates: start: 20110123
  2. CELLCEPT [Suspect]
     Indication: LIVER TRANSPLANT
     Route: 048
     Dates: start: 20110120
  3. PROGRAF [Suspect]
     Indication: LIVER TRANSPLANT
  4. VIREAD [Suspect]
     Indication: HEPATITIS B
     Route: 048
     Dates: start: 20110120

REACTIONS (7)
  - ANXIETY [None]
  - DELIRIUM [None]
  - PARANOIA [None]
  - AGITATION [None]
  - PERSECUTORY DELUSION [None]
  - SEDATION [None]
  - HALLUCINATION [None]
